FAERS Safety Report 15267920 (Version 1)
Quarter: 2018Q3

REPORT INFORMATION
  Report Type: Spontaneous
  Country: US (occurrence: US)
  Receive Date: 20180725
  Receipt Date: 20180725
  Transmission Date: 20181010
  Serious: Yes (Disabling)
  Sender: FDA-Public Use
  Company Number: None

PATIENT
  Age: 57 Year
  Sex: Female
  Weight: 76.5 kg

DRUGS (1)
  1. TOPIRAMATE 25 MG TAB [Suspect]
     Active Substance: TOPIRAMATE
     Indication: MIGRAINE
     Dosage: ?          QUANTITY:1 TABLET(S);?
     Route: 048
     Dates: start: 20180629, end: 20180716

REACTIONS (7)
  - Rhinorrhoea [None]
  - Skin disorder [None]
  - Cough [None]
  - Condition aggravated [None]
  - Pruritus [None]
  - Rash pustular [None]
  - Alopecia [None]

NARRATIVE: CASE EVENT DATE: 20180629
